FAERS Safety Report 5779198-9 (Version None)
Quarter: 2008Q2

REPORT INFORMATION
  Report Type: 
  Country: None (occurrence: None)
  Receive Date: 20080619
  Receipt Date: 20080610
  Transmission Date: 20081010
  Serious: No
  Sender: FDA-Public Use
  Company Number: US-VALEANT-2007VX002975

PATIENT
  Age: 42 Year
  Sex: Female
  Weight: 137 kg

DRUGS (12)
  1. PERMAX [Suspect]
     Indication: PARKINSON'S DISEASE
     Route: 065
     Dates: start: 20020809, end: 20051002
  2. ASPIRIN [Concomitant]
     Route: 048
     Dates: start: 20070423
  3. TYLENOL (CAPLET) [Concomitant]
     Route: 065
     Dates: start: 20070423
  4. METFORMIN [Concomitant]
     Route: 065
     Dates: start: 20070619
  5. EZETIMIBE [Concomitant]
     Route: 065
  6. IBUROFEN [Concomitant]
     Route: 048
     Dates: start: 20070619
  7. HYDROCODONE BITARTRATE [Concomitant]
     Route: 048
     Dates: start: 20070628
  8. ACETAMINOPHEN [Concomitant]
     Route: 048
     Dates: start: 20070628
  9. ALBUTEROL [Concomitant]
     Route: 065
     Dates: start: 20070712
  10. OXYCODONE HCL [Concomitant]
     Route: 065
  11. WELLBUTRIN [Concomitant]
     Indication: DEPRESSION
     Route: 048
     Dates: start: 20071002
  12. CIPROFLOXACIN [Concomitant]
     Route: 048
     Dates: start: 20071002

REACTIONS (3)
  - LEFT VENTRICULAR HYPERTROPHY [None]
  - MITRAL VALVE INCOMPETENCE [None]
  - TRICUSPID VALVE INCOMPETENCE [None]
